FAERS Safety Report 8002805-7 (Version None)
Quarter: 2011Q4

REPORT INFORMATION
  Report Type: 
  Country: None (occurrence: None)
  Receive Date: 20111222
  Receipt Date: 20111013
  Transmission Date: 20120403
  Serious: No
  Sender: FDA-Public Use
  Company Number: US-GLAXOSMITHKLINE-A0860447A

PATIENT
  Age: 34 Year
  Sex: Female

DRUGS (1)
  1. AVODART [Suspect]
     Indication: PRODUCT USED FOR UNKNOWN INDICATION
     Dosage: .5MG SINGLE DOSE
     Route: 065

REACTIONS (2)
  - EXPOSURE DURING BREAST FEEDING [None]
  - ACCIDENTAL EXPOSURE [None]
